FAERS Safety Report 4388567-3 (Version None)
Quarter: 2004Q2

REPORT INFORMATION
  Report Type: 
  Country: None (occurrence: None)
  Receive Date: 20040622
  Receipt Date: 20040609
  Transmission Date: 20050107
  Serious: Yes (Hospitalization)
  Sender: FDA-Public Use
  Company Number: 2004-02032

PATIENT
  Age: 66 Year
  Sex: Male

DRUGS (1)
  1. IMMUCYST (BCG - IT (CONNAUGHT)), AVENTIS PASTEUR LTD [Suspect]
     Indication: BLADDER CANCER RECURRENT
     Dosage: 81.0 MG
     Route: 043
     Dates: start: 20040414

REACTIONS (7)
  - ASTHENIA [None]
  - HAEMATURIA [None]
  - HEPATIC NECROSIS [None]
  - HEPATITIS GRANULOMATOUS [None]
  - NIGHT SWEATS [None]
  - SEPSIS [None]
  - URETHRAL HAEMORRHAGE [None]
